FAERS Safety Report 6101641-6 (Version None)
Quarter: 2009Q1

REPORT INFORMATION
  Report Type: 
  Country: None (occurrence: None)
  Receive Date: 20090227
  Receipt Date: 20081017
  Transmission Date: 20090719
  Serious: Yes (Hospitalization)
  Sender: FDA-Public Use
  Company Number: 268720

PATIENT
  Age: 15 Year
  Sex: Male
  Weight: 116.6 kg

DRUGS (3)
  1. NUTROPIN [Suspect]
     Indication: GROWTH HORMONE DEFICIENCY
     Dosage: 4.4 MG, 6/WEEK, SUBCUTANEOUS
     Route: 058
     Dates: start: 20071125
  2. CONCERTA [Concomitant]
  3. LEXAPRO [Concomitant]

REACTIONS (1)
  - EPIPHYSIOLYSIS [None]
